FAERS Safety Report 5037793-9 (Version None)
Quarter: 2006Q2

REPORT INFORMATION
  Report Type: 
  Country: None (occurrence: None)
  Receive Date: 20060601
  Receipt Date: 20060211
  Transmission Date: 20061013
  Serious: No
  Sender: FDA-Public Use
  Company Number: 2006PV008522

PATIENT
  Age: 46 Year
  Sex: Female
  Weight: 104.3273 kg

DRUGS (4)
  1. BYETTA [Suspect]
     Indication: DIABETES MELLITUS NON-INSULIN-DEPENDENT
     Dosage: 10 MCG;BID;SC, 5 MCG;BID;SC
     Route: 058
     Dates: start: 20051222, end: 20060122
  2. BYETTA [Suspect]
     Indication: DIABETES MELLITUS NON-INSULIN-DEPENDENT
     Dosage: 10 MCG;BID;SC, 5 MCG;BID;SC
     Route: 058
     Dates: start: 20060123
  3. ACTOPLUS MET [Concomitant]
  4. AVANDIA [Concomitant]

REACTIONS (6)
  - DECREASED APPETITE [None]
  - DRUG EFFECT DECREASED [None]
  - DRY MOUTH [None]
  - INJECTION SITE BRUISING [None]
  - TREMOR [None]
  - VISION BLURRED [None]
